FAERS Safety Report 22246370 (Version 1)
Quarter: 2023Q2

REPORT INFORMATION
  Report Type: Spontaneous
  Country: TR (occurrence: TR)
  Receive Date: 20230424
  Receipt Date: 20230424
  Transmission Date: 20230722
  Serious: Yes (Other)
  Sender: FDA-Public Use
  Company Number: TR-PFIZER INC-PV202300072290

PATIENT
  Age: 54 Year
  Sex: Female

DRUGS (2)
  1. BOSUTINIB [Suspect]
     Active Substance: BOSUTINIB
     Indication: Chronic myeloid leukaemia
     Dosage: 300 MG
  2. BOSUTINIB [Suspect]
     Active Substance: BOSUTINIB
     Dosage: 500 MG

REACTIONS (2)
  - Hepatitis B reactivation [Recovered/Resolved]
  - Diarrhoea [Recovered/Resolved]
